FAERS Safety Report 14513683 (Version 1)
Quarter: 2018Q1

REPORT INFORMATION
  Report Type: Spontaneous
  Country: GB (occurrence: US)
  Receive Date: 20180209
  Receipt Date: 20180209
  Transmission Date: 20180509
  Serious: Yes (Other)
  Sender: FDA-Public Use
  Company Number: GB-SA-2018SA029352

PATIENT
  Sex: Female

DRUGS (1)
  1. THYROGEN [Suspect]
     Active Substance: THYROTROPIN ALFA
     Route: 030

REACTIONS (11)
  - Impaired gastric emptying [Unknown]
  - Arthralgia [Unknown]
  - Pruritus [Unknown]
  - Dry skin [Unknown]
  - Feeling abnormal [Unknown]
  - Myalgia [Unknown]
  - Headache [Unknown]
  - Feeling cold [Unknown]
  - Fatigue [Unknown]
  - Hypothyroidism [Unknown]
  - Sinus congestion [Unknown]

NARRATIVE: CASE EVENT DATE: 20171120
